FAERS Safety Report 9613217 (Version 1)
Quarter: 2013Q4

REPORT INFORMATION
  Report Type: Spontaneous
  Country: US (occurrence: US)
  Receive Date: 20131010
  Receipt Date: 20131010
  Transmission Date: 20140711
  Serious: Yes (Death, Hospitalization)
  Sender: FDA-Public Use
  Company Number: US-GLAXOSMITHKLINE-A1044577A

PATIENT
  Age: 58 Year
  Sex: Female

DRUGS (2)
  1. VENTOLIN [Suspect]
     Indication: DYSPNOEA
     Dosage: 2PUFF AS REQUIRED
     Route: 055
  2. HYDROCHLOROTHIAZIDE [Concomitant]

REACTIONS (3)
  - Neoplasm malignant [Fatal]
  - Cerebral haemorrhage [Unknown]
  - Metastases to central nervous system [Unknown]
